FAERS Safety Report 8863802 (Version 1)
Quarter: 2012Q4

REPORT INFORMATION
  Report Type: 
  Country: US (occurrence: US)
  Receive Date: 20121024
  Receipt Date: 20121024
  Transmission Date: 20130627
  Serious: No
  Sender: FDA-Public Use
  Company Number: US-AMGEN-USASP2011064087

PATIENT
  Age: 50 Year
  Sex: Male

DRUGS (1)
  1. ENBREL [Suspect]
     Indication: PSORIATIC ARTHROPATHY
     Dosage: UNK
     Dates: start: 20110413, end: 201110

REACTIONS (4)
  - Pulmonary congestion [Recovered/Resolved]
  - Sinus congestion [Recovered/Resolved]
  - Lung disorder [Recovered/Resolved]
  - Anxiety [Not Recovered/Not Resolved]
